FAERS Safety Report 4449253-4 (Version None)
Quarter: 2004Q3

REPORT INFORMATION
  Report Type: 
  Country: None (occurrence: None)
  Receive Date: 20040910
  Receipt Date: 20040901
  Transmission Date: 20050211
  Serious: Yes (Hospitalization)
  Sender: FDA-Public Use
  Company Number: HQWYE746001SEP04

PATIENT
  Age: 72 Year
  Sex: Male

DRUGS (6)
  1. PANTOPRAZOLE SODIUM [Suspect]
     Dosage: 40 MG 1X PER 1 DAY
     Route: 042
     Dates: start: 20040811
  2. GENTAMICIN [Suspect]
     Dosage: 300 MG 1X PER 1 DAY
     Route: 042
     Dates: start: 20040811
  3. IMMUNE GLOBULIN INTRAVENOUS (HUMAN) [Suspect]
     Dosage: 70 MG 1X PER 24 HR
     Route: 042
     Dates: start: 20040813, end: 20040814
  4. RIFAMPICIN [Suspect]
     Dosage: 600 MG 1X PER 1 DAY
     Route: 042
     Dates: start: 20040811
  5. TARGOCID [Suspect]
     Dosage: 400 MG 1X PER 1 DAY
     Route: 042
     Dates: start: 20040811
  6. ORBENIN CAP [Concomitant]

REACTIONS (2)
  - IDIOPATHIC THROMBOCYTOPENIC PURPURA [None]
  - RENAL FAILURE ACUTE [None]
